FAERS Safety Report 9130826 (Version 1)
Quarter: 2013Q1

REPORT INFORMATION
  Report Type: Spontaneous
  Country: US (occurrence: US)
  Receive Date: 20130301
  Receipt Date: 20130301
  Transmission Date: 20140127
  Serious: Yes (Death, Other)
  Sender: FDA-Public Use
  Company Number: PHHY2013US020215

PATIENT
  Sex: Male

DRUGS (4)
  1. CLONIDINE [Suspect]
  2. BUPROPION [Suspect]
  3. METHYLPHENIDATE [Suspect]
  4. MELATONIN [Suspect]

REACTIONS (2)
  - Toxicity to various agents [Fatal]
  - Intentional overdose [Unknown]
